FAERS Safety Report 4289929-5 (Version None)
Quarter: 2004Q1

REPORT INFORMATION
  Report Type: 
  Country: None (occurrence: None)
  Receive Date: 20040209
  Receipt Date: 20040121
  Transmission Date: 20041129
  Serious: Yes (Other)
  Sender: FDA-Public Use
  Company Number: PHBS2004BR01170

PATIENT
  Age: 73 Year
  Sex: Female

DRUGS (5)
  1. LIORESAL [Suspect]
     Dosage: 10 MG, BID
     Route: 048
     Dates: start: 20020101
  2. HIGROTON [Concomitant]
     Dosage: 50 MG/DAY
     Route: 065
  3. FORASEQ [Concomitant]
     Dosage: 200 UG/DAY
     Route: 065
  4. PURAN T4 [Concomitant]
     Dosage: 50 UG/DAY
     Route: 065
  5. MARAX [Concomitant]
     Route: 065

REACTIONS (3)
  - HYPERAEMIA [None]
  - HYPERSENSITIVITY [None]
  - SKIN DESQUAMATION [None]
